FAERS Safety Report 6681177-4 (Version None)
Quarter: 2010Q2

REPORT INFORMATION
  Report Type: 
  Country: None (occurrence: None)
  Receive Date: 20100412
  Receipt Date: 20100408
  Transmission Date: 20101027
  Serious: Yes (Hospitalization)
  Sender: FDA-Public Use
  Company Number: GRT2010-12573

PATIENT
  Age: 60 Year
  Sex: Male

DRUGS (1)
  1. LIDOCAINE HCL [Suspect]
     Indication: NEURALGIA
     Dosage: 2 PATCHES A DAY

REACTIONS (1)
  - SUPRAVENTRICULAR TACHYCARDIA [None]
